FAERS Safety Report 10330948 (Version 2)
Quarter: 2014Q3

REPORT INFORMATION
  Report Type: Spontaneous
  Country: FI (occurrence: FI)
  Receive Date: 20140722
  Receipt Date: 20140912
  Transmission Date: 20150326
  Serious: Yes (Disabling, Other)
  Sender: FDA-Public Use
  Company Number: FI-MUNDIPHARMA DS AND PHARMACOVIGILANCE-GBR-2014-0019330

PATIENT
  Sex: Female

DRUGS (4)
  1. OXYNORM KAPSELI, KOVA [Suspect]
     Active Substance: OXYCODONE HYDROCHLORIDE
     Indication: BREAKTHROUGH PAIN
     Dosage: 10 MG, PRN
     Route: 048
     Dates: start: 20140703, end: 201407
  2. OXYNORM 10 MG/ML, INJEKTIO-/INFUUSIONESTE, LIUOS [Interacting]
     Active Substance: OXYCODONE HYDROCHLORIDE
     Indication: BREAKTHROUGH PAIN
     Dosage: UNK
     Route: 042
     Dates: start: 201406, end: 201407
  3. DUROGESIC [Interacting]
     Active Substance: FENTANYL
     Indication: BACK PAIN
     Dosage: 75 UNK, UNK
  4. OXYNORM SOLUTION INJECTABLE [Interacting]
     Active Substance: OXYCODONE HYDROCHLORIDE
     Indication: BREAKTHROUGH PAIN
     Dosage: UNK
     Route: 048
     Dates: start: 20140717, end: 201407

REACTIONS (4)
  - Muscular weakness [Recovered/Resolved]
  - Dysstasia [Recovered/Resolved]
  - Pain in extremity [Recovered/Resolved]
  - Drug interaction [Unknown]
